FAERS Safety Report 9480028 (Version 1)
Quarter: 2013Q3

REPORT INFORMATION
  Report Type: Spontaneous
  Country: US (occurrence: US)
  Receive Date: 20130828
  Receipt Date: 20130828
  Transmission Date: 20140515
  Serious: Yes (Hospitalization)
  Sender: FDA-Public Use
  Company Number: US-AMGEN-KDL058453

PATIENT
  Age: 62 Year
  Sex: Male

DRUGS (2)
  1. ENBREL [Suspect]
     Indication: RHEUMATOID ARTHRITIS
     Dosage: 25 MG, 2 TIMES/WK
     Route: 058
     Dates: start: 20030411
  2. PREDNISONE [Concomitant]

REACTIONS (8)
  - Diverticulitis [Unknown]
  - Pneumaturia [Unknown]
  - Coronary artery disease [Unknown]
  - Urinary bladder rupture [Unknown]
  - Bacteriuria [Unknown]
  - Gout [Unknown]
  - Diabetes mellitus [Unknown]
  - Nephrolithiasis [Unknown]
